FAERS Safety Report 13638375 (Version 1)
Quarter: 2017Q2

REPORT INFORMATION
  Report Type: Spontaneous
  Country: US (occurrence: US)
  Receive Date: 20170609
  Receipt Date: 20170609
  Transmission Date: 20170830
  Serious: No
  Sender: FDA-Public Use
  Company Number: US-TARO-2016TAR00787

PATIENT
  Age: 56 Year
  Sex: Female
  Weight: 70.3 kg

DRUGS (16)
  1. ASPIRIN. [Concomitant]
     Active Substance: ASPIRIN
  2. TIZANIDINE. [Concomitant]
     Active Substance: TIZANIDINE
  3. TEMAZEPAM. [Concomitant]
     Active Substance: TEMAZEPAM
  4. ETODOLAC CAPSULES 200 MG [Suspect]
     Active Substance: ETODOLAC
     Indication: SPINAL OSTEOARTHRITIS
     Dosage: 200 MG, 2X/DAY
     Route: 048
     Dates: start: 20160902, end: 20160905
  5. REFRESH OPTIC [Concomitant]
  6. ETODOLAC CAPSULES 200 MG [Suspect]
     Active Substance: ETODOLAC
     Indication: OSTEOARTHRITIS
  7. PROAIR HFA [Concomitant]
     Active Substance: ALBUTEROL SULFATE
  8. PROGESTERONE. [Concomitant]
     Active Substance: PROGESTERONE
  9. CLONAZEPAM. [Concomitant]
     Active Substance: CLONAZEPAM
     Dosage: 0.05 MG, 3X/DAY
  10. FLUOCINONIDE. [Concomitant]
     Active Substance: FLUOCINONIDE
  11. VITAMIN E [Concomitant]
     Active Substance: .ALPHA.-TOCOPHEROL
  12. ESTROGEN ESTRING [Concomitant]
  13. RESTASIS [Concomitant]
     Active Substance: CYCLOSPORINE
  14. MUTLIVITAMIN [Concomitant]
  15. VITAMIN C [Concomitant]
     Active Substance: ASCORBIC ACID
  16. CALCIUM CITRATE [Concomitant]
     Active Substance: CALCIUM CITRATE
     Dosage: 1800 MG, UNK

REACTIONS (3)
  - Abdominal pain upper [Not Recovered/Not Resolved]
  - Pruritus [Not Recovered/Not Resolved]
  - Urine abnormality [Not Recovered/Not Resolved]

NARRATIVE: CASE EVENT DATE: 20160905
